FAERS Safety Report 9896388 (Version 1)
Quarter: 2014Q1

REPORT INFORMATION
  Report Type: Spontaneous
  Country: US (occurrence: US)
  Receive Date: 20140213
  Receipt Date: 20140213
  Transmission Date: 20141002
  Serious: No
  Sender: FDA-Public Use
  Company Number: US-BRISTOL-MYERS SQUIBB COMPANY-19799626

PATIENT
  Age: 38 Year
  Sex: Female

DRUGS (11)
  1. ABATACEPT SUBQ INJECTION 125MG/ML [Suspect]
     Indication: RHEUMATOID ARTHRITIS
     Dosage: 1DF=125MG/ML
     Route: 058
  2. METHOTREXATE [Concomitant]
     Dosage: TAB 2.5MG
  3. FOLIC ACID [Concomitant]
     Dosage: TAB
  4. OMEPRAZOLE [Concomitant]
     Dosage: CAP 40MG
  5. VITAMIN C [Concomitant]
     Dosage: CAP 500MG
  6. VITAMIN B12 [Concomitant]
     Dosage: SUB 1000MCG
  7. MULTIVITAMIN [Concomitant]
     Dosage: CAP
  8. ESTRADIOL [Concomitant]
     Dosage: TAB 0.5MG
  9. METHYLPREDNISOLONE [Concomitant]
     Dosage: TAB 8MG
  10. NEMBUTAL [Concomitant]
     Dosage: INJ 5OMGIML
  11. FLUOXETINE [Concomitant]
     Dosage: CAP 10MG

REACTIONS (2)
  - Fatigue [Unknown]
  - Sinusitis [Unknown]
